FAERS Safety Report 10951767 (Version 1)
Quarter: 2015Q1

REPORT INFORMATION
  Report Type: Spontaneous
  Country: JP (occurrence: JP)
  Receive Date: 20150325
  Receipt Date: 20150325
  Transmission Date: 20150721
  Serious: Yes (Hospitalization, Other)
  Sender: FDA-Public Use
  Company Number: JP-ROCHE-1521191

PATIENT
  Age: 86 Year
  Sex: Female
  Weight: 51 kg

DRUGS (6)
  1. PRAVASTATIN SODIUM. [Concomitant]
     Active Substance: PRAVASTATIN SODIUM
     Route: 048
  2. CILNIDIPINE [Concomitant]
     Active Substance: CILNIDIPINE
     Route: 048
     Dates: start: 20131017
  3. BONVIVA [Suspect]
     Active Substance: IBANDRONATE SODIUM
     Indication: OSTEOPOROSIS
     Route: 042
     Dates: start: 20141117, end: 20141215
  4. AVAPRO [Concomitant]
     Active Substance: IRBESARTAN
     Route: 048
     Dates: start: 20140626
  5. BAYASPIRIN [Concomitant]
     Active Substance: ASPIRIN
     Route: 048
     Dates: start: 20100225
  6. EDIROL [Concomitant]
     Active Substance: ELDECALCITOL
     Indication: OSTEOPOROSIS
     Route: 048
     Dates: start: 20121105

REACTIONS (2)
  - Osteomyelitis [Recovering/Resolving]
  - Jaw disorder [Recovered/Resolved]

NARRATIVE: CASE EVENT DATE: 20141218
